FAERS Safety Report 6458673-8 (Version None)
Quarter: 2009Q4

REPORT INFORMATION
  Report Type: 
  Country: None (occurrence: None)
  Receive Date: 20091120
  Receipt Date: 20091105
  Transmission Date: 20100525
  Serious: No
  Sender: FDA-Public Use
  Company Number: 007328

PATIENT
  Age: 85 Year
  Sex: Male
  Weight: 70 kg

DRUGS (3)
  1. PLETAL [Suspect]
     Indication: PERIPHERAL ARTERIAL OCCLUSIVE DISEASE
     Dosage: 100 MG, ORAL
     Route: 048
     Dates: start: 20090730, end: 20090802
  2. DUSODRIL (NAFTIDROFURYL OXALATE) [Suspect]
     Indication: PERIPHERAL ARTERIAL OCCLUSIVE DISEASE
     Dosage: 100 MG, QD; ORAL
     Route: 047
     Dates: start: 20090803, end: 20090805
  3. OMACOR [Concomitant]

REACTIONS (7)
  - ABDOMINAL DISTENSION [None]
  - CHEST PAIN [None]
  - DIARRHOEA [None]
  - DIZZINESS [None]
  - HEADACHE [None]
  - MUSCULOSKELETAL DISCOMFORT [None]
  - NAUSEA [None]
